FAERS Safety Report 8997280 (Version 2)
Quarter: 2013Q1

REPORT INFORMATION
  Report Type: Spontaneous
  Country: FR (occurrence: FR)
  Receive Date: 20130104
  Receipt Date: 20130110
  Transmission Date: 20140127
  Serious: Yes (Hospitalization)
  Sender: FDA-Public Use
  Company Number: FR-PFIZER INC-2013002292

PATIENT
  Age: 51 Year
  Sex: Male

DRUGS (9)
  1. ALPRAZOLAM [Suspect]
     Dosage: UNK
     Dates: start: 2012
  2. TERCIAN [Suspect]
     Dosage: 40 MG/ML
     Route: 048
  3. RISPERDAL [Suspect]
     Dosage: UNK
     Route: 048
  4. IMOVANE [Suspect]
     Dosage: 7.5MG
     Route: 048
     Dates: start: 2012
  5. KARDEGIC [Suspect]
     Dosage: 75 MG
     Route: 048
     Dates: start: 20111103
  6. NORSET [Suspect]
     Dosage: 15 MG
     Route: 048
     Dates: start: 201111
  7. PARKINANE [Suspect]
     Dosage: 2 MG
  8. LANSOPRAZOLE [Suspect]
     Dosage: UNK
     Dates: start: 2012
  9. ATARAX [Suspect]
     Dosage: 25 MG
     Route: 048
     Dates: start: 2012

REACTIONS (2)
  - Pulmonary embolism [Recovered/Resolved]
  - Thrombocytopenia [Unknown]
